FAERS Safety Report 9083105 (Version 1)
Quarter: 2013Q1

REPORT INFORMATION
  Report Type: Spontaneous
  Country: US (occurrence: US)
  Receive Date: 20130130
  Receipt Date: 20130130
  Transmission Date: 20140127
  Serious: No
  Sender: FDA-Public Use
  Company Number: US-ABBOTT-12P-163-0965242-00

PATIENT
  Age: 46 None
  Sex: Male
  Weight: 98.52 kg

DRUGS (1)
  1. HUMIRA 40 MG/0.8 ML PEN [Suspect]
     Indication: PSORIASIS

REACTIONS (2)
  - Psoriasis [Recovering/Resolving]
  - Sinusitis [Recovered/Resolved]
